FAERS Safety Report 6631712-7 (Version None)
Quarter: 2010Q1

REPORT INFORMATION
  Report Type: 
  Country: None (occurrence: None)
  Receive Date: 20100312
  Receipt Date: 20100228
  Transmission Date: 20100710
  Serious: Yes (Life-Threatening)
  Sender: FDA-Public Use
  Company Number: IT-PFIZER INC-2010010898

PATIENT
  Age: 20 Year
  Sex: Female

DRUGS (10)
  1. ZAVEDOS [Suspect]
     Indication: ACUTE LYMPHOCYTIC LEUKAEMIA
     Dosage: 20 MG, X/DAY
     Route: 042
     Dates: start: 20090512, end: 20090513
  2. CYCLOPHOSPHAMIDE [Suspect]
     Indication: ACUTE LYMPHOCYTIC LEUKAEMIA
     Dosage: 492 MG, X/DAY
     Route: 042
     Dates: start: 20090508, end: 20090510
  3. VINCRISTINE SULFATE [Suspect]
     Indication: ACUTE LYMPHOCYTIC LEUKAEMIA
     Dosage: 4 MG, TOTAL
     Route: 042
     Dates: start: 20090510, end: 20090512
  4. METHYLPREDNISOLONE SODIUM SUCCINATE [Suspect]
     Indication: ACUTE LYMPHOCYTIC LEUKAEMIA
     Dosage: 60 MG, X/DAY
     Route: 042
     Dates: start: 20090506, end: 20090510
  5. DEXAMETHASONE PHOSPHATE [Suspect]
     Indication: ACUTE LYMPHOCYTIC LEUKAEMIA
     Dosage: 16 MG, X/DAY
     Route: 042
     Dates: start: 20090512, end: 20090530
  6. METHOTREXATE [Concomitant]
     Dosage: 12 MG, UNK
     Route: 037
     Dates: start: 20090513, end: 20090513
  7. CYTARABINE [Concomitant]
     Dosage: 50 MG
     Route: 037
     Dates: start: 20090513, end: 20090513
  8. METHYLPREDNISOLONE SODIUM SUCCINATE [Concomitant]
     Dosage: 60 MG
     Route: 037
     Dates: start: 20090513, end: 20090513
  9. LEUPROLIDE ACETATE [Concomitant]
     Dosage: 1 UNIT
     Route: 058
     Dates: start: 20090515, end: 20090515
  10. ELSPAR [Concomitant]
     Indication: ACUTE LYMPHOCYTIC LEUKAEMIA
     Dosage: 10000 IU, TOTAL
     Route: 042
     Dates: start: 20090519, end: 20090521

REACTIONS (6)
  - ANAEMIA [None]
  - COLITIS ULCERATIVE [None]
  - HEPATOTOXICITY [None]
  - INTESTINAL HAEMORRHAGE [None]
  - MUCOSAL INFLAMMATION [None]
  - PULMONARY MYCOSIS [None]
